FAERS Safety Report 23280591 (Version 1)
Quarter: 2023Q4

REPORT INFORMATION
  Report Type: Report from Study
  Country: BR (occurrence: BR)
  Receive Date: 20231211
  Receipt Date: 20231211
  Transmission Date: 20240110
  Serious: Yes (Death)
  Sender: FDA-Public Use
  Company Number: BR-JNJFOC-20231211463

PATIENT
  Age: 83 Year
  Sex: Female

DRUGS (4)
  1. GOLIMUMAB [Suspect]
     Active Substance: GOLIMUMAB
     Indication: Rheumatoid arthritis
     Route: 058
  2. GOLIMUMAB [Suspect]
     Active Substance: GOLIMUMAB
  3. GOLIMUMAB [Suspect]
     Active Substance: GOLIMUMAB
  4. MORPHINE [Concomitant]
     Active Substance: MORPHINE

REACTIONS (5)
  - Inguinal hernia [Fatal]
  - Gastrointestinal necrosis [Fatal]
  - Cardio-respiratory arrest [Fatal]
  - Peritonitis [Fatal]
  - Hypertension [Fatal]

NARRATIVE: CASE EVENT DATE: 20230312
